FAERS Safety Report 18897822 (Version 1)
Quarter: 2021Q1

REPORT INFORMATION
  Report Type: Spontaneous
  Country: US (occurrence: US)
  Receive Date: 20210212
  Receipt Date: 20210212
  Transmission Date: 20210420
  Serious: Yes (Death)
  Sender: FDA-Public Use
  Company Number: None

PATIENT
  Age: 52 Year
  Sex: Male

DRUGS (5)
  1. OYSCO 500/D TABLETS [Concomitant]
     Dates: start: 20201207
  2. SPIRONOLACTONE 50MG TABLETS [Concomitant]
     Dates: start: 20201218
  3. LACTULOSE 10GM/15ML SOLUTION [Concomitant]
     Active Substance: LACTULOSE
     Dates: start: 20201207
  4. XIFAXAN [Suspect]
     Active Substance: RIFAXIMIN
     Indication: HEPATIC ENCEPHALOPATHY
     Route: 048
     Dates: start: 20201207
  5. FUROSEMIDE 20MG TABLETS [Concomitant]
     Active Substance: FUROSEMIDE
     Dates: start: 20201218

REACTIONS (1)
  - Cardiac arrest [None]

NARRATIVE: CASE EVENT DATE: 20210126
